FAERS Safety Report 14190677 (Version 3)
Quarter: 2018Q1

REPORT INFORMATION
  Report Type: Report from Study
  Country: FR (occurrence: FR)
  Receive Date: 20171115
  Receipt Date: 20180112
  Transmission Date: 20180508
  Serious: Yes (Hospitalization, Other)
  Sender: FDA-Public Use
  Company Number: FR-VIIV HEALTHCARE LIMITED-FR2017GSK173741

PATIENT
  Age: 36 Year
  Sex: Male

DRUGS (5)
  1. TRUVADA [Concomitant]
     Active Substance: EMTRICITABINE\TENOFOVIR DISOPROXIL FUMARATE
     Indication: HIV INFECTION
     Dosage: UNK
     Dates: start: 20130807
  2. CELSENTRI [Concomitant]
     Active Substance: MARAVIROC
     Dosage: UNK
     Dates: start: 20130807
  3. ISENTRESS [Concomitant]
     Active Substance: RALTEGRAVIR POTASSIUM
     Dosage: UNK
     Dates: start: 20170807
  4. DOLUTEGRAVIR [Suspect]
     Active Substance: DOLUTEGRAVIR
     Indication: HIV INFECTION
     Dosage: 50 MG, 1D
     Route: 048
     Dates: start: 20140519, end: 20160223
  5. TIVICAY [Suspect]
     Active Substance: DOLUTEGRAVIR SODIUM
     Indication: HIV INFECTION
     Dosage: 50 MG, QD
     Dates: start: 20140519, end: 20160223

REACTIONS (5)
  - Ischaemic stroke [Recovered/Resolved]
  - Varicella zoster virus infection [Recovered/Resolved]
  - Headache [Unknown]
  - Neurological decompensation [Unknown]
  - Viral vasculitis [Recovered/Resolved]

NARRATIVE: CASE EVENT DATE: 20151113
